FAERS Safety Report 17233316 (Version 3)
Quarter: 2020Q1

REPORT INFORMATION
  Report Type: Report from Study
  Country: None (occurrence: NL)
  Receive Date: 20200104
  Receipt Date: 20200202
  Transmission Date: 20200409
  Serious: Yes (Death)
  Sender: FDA-Public Use
  Company Number: NL-ABBVIE-20K-114-3219175-00

PATIENT
  Age: 71 Year
  Sex: Male

DRUGS (2)
  1. DUODOPA [Suspect]
     Active Substance: CARBIDOPA\LEVODOPA
     Route: 050
  2. DUODOPA [Suspect]
     Active Substance: CARBIDOPA\LEVODOPA
     Indication: PARKINSON^S DISEASE
     Dosage: MD: 9 CD: 3.5 ED: 2?STRENGTH :- 20 MG/ML 5 MG/ML
     Route: 050
     Dates: start: 20171122, end: 20200103

REACTIONS (2)
  - Lymphadenopathy [Unknown]
  - Death [Fatal]

NARRATIVE: CASE EVENT DATE: 20200103
